FAERS Safety Report 17711808 (Version 1)
Quarter: 2020Q2

REPORT INFORMATION
  Report Type: Spontaneous
  Country: GB (occurrence: GB)
  Receive Date: 20200427
  Receipt Date: 20200427
  Transmission Date: 20200714
  Serious: Yes (Hospitalization, Other)
  Sender: FDA-Public Use
  Company Number: GB-PFIZER INC-2020162438

PATIENT
  Age: 84 Year
  Sex: Female

DRUGS (10)
  1. ISOSORBIDE MONONITRATE. [Suspect]
     Active Substance: ISOSORBIDE MONONITRATE
     Dosage: 10 MG, 1X/DAY (MORNING)
     Route: 048
     Dates: end: 20191002
  2. CANDESARTAN. [Suspect]
     Active Substance: CANDESARTAN
     Dosage: 2 MG, 1X/DAY (IN THE MORNING)
     Route: 048
     Dates: end: 20191002
  3. ADCAL D3 [Concomitant]
     Active Substance: CALCIUM CARBONATE\CHOLECALCIFEROL
     Dosage: 2 DF, 1X/DAY
     Route: 048
  4. FOLIC ACID. [Concomitant]
     Active Substance: FOLIC ACID
     Dosage: 5 MG, 1X/DAY (MORNING)
     Route: 048
  5. TRAZODONE [Concomitant]
     Active Substance: TRAZODONE HYDROCHLORIDE
     Dosage: 300 MG, DAILY (100 MG AT LUNCHTIME AND 200 MG AT NIGHT)
     Route: 048
  6. VENLAFAXINE [Concomitant]
     Active Substance: VENLAFAXINE HYDROCHLORIDE
     Dosage: 225 MG, 1X/DAY (MORNING)
     Route: 048
  7. ATORVASTATIN [Concomitant]
     Active Substance: ATORVASTATIN
     Indication: BLOOD CHOLESTEROL
     Dosage: 40 MG
     Route: 048
  8. ACETYLSALICYLIC ACID [Concomitant]
     Active Substance: ASPIRIN
     Dosage: 75 MG, 1X/DAY (MORNING)
     Route: 048
  9. SPIRONOLACTONE. [Suspect]
     Active Substance: SPIRONOLACTONE
     Dosage: 25 MG, 1X/DAY (IN THE MORNING)
     Route: 048
     Dates: end: 20191002
  10. CARBOMER [Concomitant]
     Active Substance: CARBOMER
     Dosage: 1 DROP (ONE DROP IN BOTH EYES)
     Route: 050

REACTIONS (2)
  - Acute kidney injury [Recovered/Resolved]
  - Orthostatic hypotension [Recovering/Resolving]

NARRATIVE: CASE EVENT DATE: 20191001
